FAERS Safety Report 7298356-8 (Version None)
Quarter: 2011Q1

REPORT INFORMATION
  Report Type: 
  Country: None (occurrence: None)
  Receive Date: 20110217
  Receipt Date: 20110209
  Transmission Date: 20110831
  Serious: Yes (Hospitalization)
  Sender: FDA-Public Use
  Company Number: JP-JNJFOC-20110204570

PATIENT
  Sex: Male
  Weight: 88 kg

DRUGS (9)
  1. GOLIMUMAB [Suspect]
     Indication: RHEUMATOID ARTHRITIS
     Route: 058
  2. RHEUMATREX [Suspect]
     Indication: RHEUMATOID ARTHRITIS
     Route: 048
  3. PREDNISOLONE [Suspect]
     Indication: RHEUMATOID ARTHRITIS
     Route: 048
  4. GASTER D [Suspect]
     Indication: REFLUX OESOPHAGITIS
     Route: 048
  5. AMLODIPINE [Suspect]
     Indication: HYPERTENSION
     Route: 048
  6. SELTOUCH [Suspect]
     Indication: RHEUMATOID ARTHRITIS
     Route: 062
  7. GOLIMUMAB [Suspect]
     Route: 058
  8. LONGES [Suspect]
     Indication: HYPERTENSION
     Route: 048
  9. AZULFIDINE [Suspect]
     Indication: RHEUMATOID ARTHRITIS
     Route: 048

REACTIONS (1)
  - TESTICULAR NEOPLASM [None]
